FAERS Safety Report 26125957 (Version 1)
Quarter: 2025Q4

REPORT INFORMATION
  Report Type: Spontaneous
  Country: US (occurrence: US)
  Receive Date: 20251205
  Receipt Date: 20251205
  Transmission Date: 20260117
  Serious: No
  Sender: ROCHE
  Company Number: US-ROCHE-10000450699

PATIENT

DRUGS (1)
  1. TECENTRIQ HYBREZA [Suspect]
     Active Substance: ATEZOLIZUMAB\HYALURONIDASE-TQJS
     Indication: Product used for unknown indication
     Route: 058

REACTIONS (1)
  - Injection site pain [Unknown]
